FAERS Safety Report 6634495-X (Version None)
Quarter: 2010Q1

REPORT INFORMATION
  Report Type: 
  Country: None (occurrence: None)
  Receive Date: 20100311
  Receipt Date: 20100311
  Transmission Date: 20100710
  Serious: No
  Sender: FDA-Public Use
  Company Number: None

PATIENT
  Age: 47 Year
  Sex: Female
  Weight: 79.3795 kg

DRUGS (1)
  1. ZICAM [Suspect]
     Indication: NASOPHARYNGITIS
     Dosage: SPRAYED ONCE INTO EACH NOSTRIL
     Dates: start: 20090401, end: 20090401

REACTIONS (3)
  - HYPOSMIA [None]
  - NASAL DISCOMFORT [None]
  - RHINORRHOEA [None]
